FAERS Safety Report 9844164 (Version 5)
Quarter: 2016Q3

REPORT INFORMATION
  Report Type: Spontaneous
  Country: SE (occurrence: SE)
  Receive Date: 20140127
  Receipt Date: 20160923
  Transmission Date: 20161109
  Serious: Yes (Other)
  Sender: FDA-Public Use
  Company Number: SE-BEH-2014040285

PATIENT
  Age: 72 Year
  Sex: Male

DRUGS (13)
  1. ENALAPRIL [Concomitant]
     Active Substance: ENALAPRIL
  2. CIPRALEX [Concomitant]
     Active Substance: ESCITALOPRAM OXALATE
  3. PRIVIGEN [Suspect]
     Active Substance: HUMAN IMMUNOGLOBULIN G
     Dosage: UNK
     Route: 042
     Dates: start: 20131007, end: 20131007
  4. PRIVIGEN [Suspect]
     Active Substance: HUMAN IMMUNOGLOBULIN G
     Dosage: 55 G, UNK
     Route: 042
     Dates: start: 20130916, end: 20130916
  5. PRIVIGEN [Suspect]
     Active Substance: HUMAN IMMUNOGLOBULIN G
     Indication: CHRONIC INFLAMMATORY DEMYELINATING POLYRADICULONEUROPATHY
     Dosage: INITIATED IN JUN-2013
     Route: 042
     Dates: start: 201306
  6. PRIVIGEN [Suspect]
     Active Substance: HUMAN IMMUNOGLOBULIN G
     Dosage: 55 G, UNK
     Route: 042
     Dates: start: 20130819, end: 20130819
  7. IMOVANE [Concomitant]
     Active Substance: ZOPICLONE
  8. PRIVIGEN [Suspect]
     Active Substance: HUMAN IMMUNOGLOBULIN G
     Dosage: 55 G, UNK
     Route: 042
     Dates: start: 20130902, end: 20130902
  9. PRIVIGEN [Suspect]
     Active Substance: HUMAN IMMUNOGLOBULIN G
     Dosage: UNK
     Route: 042
     Dates: start: 20131119, end: 20131119
  10. PRIVIGEN [Suspect]
     Active Substance: HUMAN IMMUNOGLOBULIN G
     Dosage: 55 G, UNK
     Route: 042
     Dates: start: 20130927, end: 20130927
  11. PRIVIGEN [Suspect]
     Active Substance: HUMAN IMMUNOGLOBULIN G
     Dosage: UNK
     Route: 042
     Dates: start: 20131028, end: 20131028
  12. SIMVASTATIN. [Concomitant]
     Active Substance: SIMVASTATIN
  13. NORVASC [Concomitant]
     Active Substance: AMLODIPINE BESYLATE

REACTIONS (12)
  - Tubulointerstitial nephritis [Unknown]
  - Glomerulonephritis membranoproliferative [Recovering/Resolving]
  - Blood albumin decreased [Unknown]
  - Blood creatinine increased [Recovering/Resolving]
  - Renal tubular atrophy [Unknown]
  - Tubulointerstitial nephritis [Recovered/Resolved with Sequelae]
  - Biopsy kidney [Unknown]
  - Proteinuria [Unknown]
  - Oedema peripheral [Unknown]
  - Nephrotic syndrome [Unknown]
  - Kidney fibrosis [Unknown]
  - Glomerulonephritis [Unknown]

NARRATIVE: CASE EVENT DATE: 2013
